FAERS Safety Report 7953991-6 (Version None)
Quarter: 2011Q4

REPORT INFORMATION
  Report Type: 
  Country: None (occurrence: None)
  Receive Date: 20111202
  Receipt Date: 20111202
  Transmission Date: 20120403
  Serious: Yes (Hospitalization)
  Sender: FDA-Public Use
  Company Number: None

PATIENT
  Age: 57 Year
  Sex: Female
  Weight: 59.874 kg

DRUGS (2)
  1. FASTIN [Suspect]
     Indication: WEIGHT CONTROL
     Dosage: 1 OR 2 TABS
     Route: 048
     Dates: start: 20111117, end: 20111117
  2. FASTIN [Suspect]
     Indication: MEDICAL DIET
     Dosage: 1 OR 2 TABS
     Route: 048
     Dates: start: 20111117, end: 20111117

REACTIONS (4)
  - DIZZINESS [None]
  - BLOOD PRESSURE INCREASED [None]
  - FEELING JITTERY [None]
  - CHEST PAIN [None]
